FAERS Safety Report 6020322-0 (Version None)
Quarter: 2008Q4

REPORT INFORMATION
  Report Type: 
  Country: None (occurrence: None)
  Receive Date: 20081223
  Receipt Date: 20081223
  Transmission Date: 20090506
  Serious: Yes (Hospitalization)
  Sender: FDA-Public Use
  Company Number: None

PATIENT
  Age: 53 Year
  Sex: Female

DRUGS (1)
  1. TIZANIDINE HCL [Suspect]
     Indication: BACK PAIN
     Dosage: 1 TABLET THREE TIMES A DAY AND 2 TABLETS AT BEDTIME
     Dates: start: 20081003

REACTIONS (3)
  - CONFUSIONAL STATE [None]
  - DIZZINESS [None]
  - ROAD TRAFFIC ACCIDENT [None]
